FAERS Safety Report 20045484 (Version 1)
Quarter: 2021Q4

REPORT INFORMATION
  Report Type: Spontaneous
  Country: None (occurrence: FR)
  Receive Date: 20211108
  Receipt Date: 20211108
  Transmission Date: 20220303
  Serious: Yes (Life-Threatening)
  Sender: FDA-Public Use
  Company Number: FR-B.Braun Medical Inc.-2121604

PATIENT
  Age: 45 Year
  Sex: Female

DRUGS (8)
  1. CEFAZOLIN [Suspect]
     Active Substance: CEFAZOLIN
  2. ROCURONIUM BROMIDE [Suspect]
     Active Substance: ROCURONIUM BROMIDE
  3. SUFENTA [Suspect]
     Active Substance: SUFENTANIL CITRATE
  4. KETAMINE [Suspect]
     Active Substance: KETAMINE
  5. PROPOFOL [Suspect]
     Active Substance: PROPOFOL
  6. DEXAMETHASONE [Suspect]
     Active Substance: DEXAMETHASONE
  7. LIDOCAINE [Suspect]
     Active Substance: LIDOCAINE
  8. CEFOXITIN [Suspect]
     Active Substance: CEFOXITIN SODIUM

REACTIONS (2)
  - Cardiac arrest [Recovered/Resolved]
  - Hypotension [Recovered/Resolved]
